FAERS Safety Report 14313221 (Version 1)
Quarter: 2017Q4

REPORT INFORMATION
  Report Type: Spontaneous
  Country: DE (occurrence: DE)
  Receive Date: 20171221
  Receipt Date: 20171221
  Transmission Date: 20180321
  Serious: Yes (Hospitalization, Other)
  Sender: FDA-Public Use
  Company Number: DE-CIPLA LTD.-2017DE24146

PATIENT

DRUGS (16)
  1. XELODA [Suspect]
     Active Substance: CAPECITABINE
     Indication: COLORECTAL CANCER
     Dosage: 54000 MG, PER DAY FOR 14 DAYS FOLLOWED BY A BREAK OF 7 DAYS.
     Route: 048
  2. AVASTIN [Suspect]
     Active Substance: BEVACIZUMAB
     Dosage: UNK
     Route: 042
     Dates: start: 20160412
  3. TILIDIN [Concomitant]
     Active Substance: NALOXONE HYDROCHLORIDE\TILIDINE HYDROCHLORIDE
     Dosage: UNK
     Route: 065
  4. AVASTIN [Suspect]
     Active Substance: BEVACIZUMAB
     Indication: COLORECTAL CANCER
     Dosage: 742.5 MG, UNK
     Route: 042
     Dates: start: 20160818, end: 20160818
  5. OXALIPLATIN. [Suspect]
     Active Substance: OXALIPLATIN
     Dosage: 135.2 MG, UNK
     Route: 042
     Dates: start: 20160523
  6. XELODA [Suspect]
     Active Substance: CAPECITABINE
     Dosage: 56000 MG, UNK
     Route: 048
  7. AVASTIN [Suspect]
     Active Substance: BEVACIZUMAB
     Dosage: 645 MG, LAST MOST RECENT DOSE PRIOR TO SAE WAS ON : 22/MAR/2016
     Route: 042
     Dates: start: 20160209, end: 20160209
  8. OXALIPLATIN. [Suspect]
     Active Substance: OXALIPLATIN
     Dosage: 262.6 MG, UNK
     Route: 042
     Dates: start: 20160322, end: 20160322
  9. OXALIPLATIN. [Suspect]
     Active Substance: OXALIPLATIN
     Indication: COLORECTAL CANCER
     Dosage: 262.6 MG, UNK
     Route: 042
     Dates: start: 20160301, end: 20160301
  10. OXALIPLATIN. [Suspect]
     Active Substance: OXALIPLATIN
     Dosage: UNK
     Route: 042
  11. OXALIPLATIN. [Suspect]
     Active Substance: OXALIPLATIN
     Dosage: 210.08 MG, UNK
     Route: 042
     Dates: start: 20160412
  12. XELODA [Suspect]
     Active Substance: CAPECITABINE
     Route: 048
  13. XELODA [Suspect]
     Active Substance: CAPECITABINE
     Dosage: 6000 MG, UNK
     Route: 048
  14. OXALIPLATIN. [Suspect]
     Active Substance: OXALIPLATIN
     Dosage: 262.6 MG, UNK
     Route: 042
     Dates: start: 20160209
  15. XELODA [Suspect]
     Active Substance: CAPECITABINE
     Dosage: 4000 MG, D1-14 FOLLOWED BY 7D PAUSE
     Route: 048
  16. XELODA [Suspect]
     Active Substance: CAPECITABINE
     Dosage: 49000 MG, UNK
     Route: 048

REACTIONS (6)
  - Stoma site haemorrhage [Not Recovered/Not Resolved]
  - Fatigue [Recovered/Resolved]
  - Dyspnoea exertional [Recovered/Resolved]
  - Nausea [Recovered/Resolved]
  - Myalgia [Recovered/Resolved]
  - Anaemia [Not Recovered/Not Resolved]

NARRATIVE: CASE EVENT DATE: 20160210
